FAERS Safety Report 7422854-7 (Version None)
Quarter: 2011Q2

REPORT INFORMATION
  Report Type: 
  Country: None (occurrence: None)
  Receive Date: 20110419
  Receipt Date: 20110408
  Transmission Date: 20111010
  Serious: Yes (Hospitalization)
  Sender: FDA-Public Use
  Company Number: JP-JNJFOC-20110404426

PATIENT
  Sex: Male

DRUGS (11)
  1. TRAMADOL HYDROCHLORIDE [Suspect]
     Dosage: 200MG/DAY
     Route: 048
  2. FAMOTIDINE [Suspect]
     Indication: PROPHYLAXIS AGAINST GASTROINTESTINAL ULCER
     Route: 048
  3. TRAMADOL HYDROCHLORIDE [Suspect]
     Indication: PAIN
     Dosage: 100MG/DAY
     Route: 048
  4. TRAMADOL HYDROCHLORIDE [Suspect]
     Route: 048
  5. METHOTREXATE [Suspect]
     Indication: ANKYLOSING SPONDYLITIS
     Route: 048
  6. VOLTAREN [Suspect]
     Indication: PAIN
     Route: 048
  7. MAGMITT [Suspect]
     Indication: CONSTIPATION
     Route: 048
  8. TRAMADOL HYDROCHLORIDE [Suspect]
     Dosage: 300MG/DAY
     Route: 048
  9. NOVAMIN [Suspect]
     Indication: NAUSEA
     Route: 048
  10. PREDONINE [Suspect]
     Indication: ANKYLOSING SPONDYLITIS
     Route: 048
  11. FOLIC ACID [Suspect]
     Indication: ANKYLOSING SPONDYLITIS
     Route: 048

REACTIONS (6)
  - CONVULSION [None]
  - NAUSEA [None]
  - FALL [None]
  - FATIGUE [None]
  - DYSPHORIA [None]
  - DIZZINESS [None]
